FAERS Safety Report 6411238-6 (Version None)
Quarter: 2009Q4

REPORT INFORMATION
  Report Type: 
  Country: None (occurrence: None)
  Receive Date: 20091022
  Receipt Date: 20091015
  Transmission Date: 20100525
  Serious: Yes (Other)
  Sender: FDA-Public Use
  Company Number: US-ABBOTT-09P-163-0602950-00

PATIENT
  Sex: Male
  Weight: 70.37 kg

DRUGS (1)
  1. KALETRA [Suspect]
     Indication: HIV INFECTION
     Dates: start: 20060101

REACTIONS (5)
  - ANAL CANCER [None]
  - ANOGENITAL WARTS [None]
  - DECREASED APPETITE [None]
  - INCONTINENCE [None]
  - WEIGHT DECREASED [None]
